FAERS Safety Report 21099435 (Version 10)
Quarter: 2024Q2

REPORT INFORMATION
  Report Type: Spontaneous
  Country: IN (occurrence: IN)
  Receive Date: 20220719
  Receipt Date: 20240513
  Transmission Date: 20240716
  Serious: Yes (Other)
  Sender: FDA-Public Use
  Company Number: IN-PFIZER INC-PV202200021039

PATIENT
  Age: 74 Year
  Sex: Male
  Weight: 50.75 kg

DRUGS (7)
  1. PALBOCICLIB [Suspect]
     Active Substance: PALBOCICLIB
     Indication: Breast cancer metastatic
     Dosage: ONCE DAILY, 21DAYS ON + 7 DAYS OFF
     Route: 048
     Dates: start: 20220422
  2. PALBOCICLIB [Suspect]
     Active Substance: PALBOCICLIB
     Indication: Breast cancer
  3. LETROZOLE [Concomitant]
     Active Substance: LETROZOLE
     Indication: Breast cancer
     Dosage: (2.5 MG)  1-0-0 X 30 DAY
  4. LETROZOLE [Concomitant]
     Active Substance: LETROZOLE
     Dosage: 2.5 MG 1-0-0 X 60 DAY
  5. CCM [Concomitant]
     Dosage: UNK, 1X/DAY
  6. LETROZOLE [Concomitant]
     Active Substance: LETROZOLE
     Dosage: (2.5 MG) 1-0-0 X 30 DAY
  7. LEUPROLIDE ACETATE [Concomitant]
     Active Substance: ISOPROPYL ALCOHOL\LEUPROLIDE ACETATE
     Dosage: 11.25 MG, CYCLIC, EVERY 3 MONTHS
     Route: 042

REACTIONS (7)
  - Blood pressure increased [Recovering/Resolving]
  - Mucosal inflammation [Unknown]
  - Haemoglobin decreased [Unknown]
  - White blood cell count decreased [Unknown]
  - Platelet count decreased [Unknown]
  - Weight increased [Recovering/Resolving]
  - Body temperature decreased [Unknown]

NARRATIVE: CASE EVENT DATE: 20220101
